FAERS Safety Report 23773960 (Version 1)
Quarter: 2024Q2

REPORT INFORMATION
  Report Type: Spontaneous
  Country: US (occurrence: None)
  Receive Date: 20240422
  Receipt Date: 20240422
  Transmission Date: 20240717
  Serious: No
  Sender: FDA-Public Use
  Company Number: None

PATIENT
  Age: 9 Year
  Sex: Female
  Weight: 46 kg

DRUGS (1)
  1. XOLAIR [Suspect]
     Active Substance: OMALIZUMAB
     Indication: Asthma
     Dosage: 300 MG Q 1 MONTH SUBCUTANEOUS?
     Route: 058
     Dates: start: 20231113, end: 20240229

REACTIONS (2)
  - Pain in extremity [None]
  - Pain in extremity [None]
